FAERS Safety Report 16940894 (Version 1)
Quarter: 2019Q4

REPORT INFORMATION
  Report Type: Spontaneous
  Country: US (occurrence: US)
  Receive Date: 20190828
  Receipt Date: 20190828
  Transmission Date: 20200122
  Serious: Yes (Hospitalization)
  Sender: FDA-Public Use
  Company Number: None

PATIENT
  Age: 70 Year
  Sex: Male

DRUGS (1)
  1. ACETAMINOPHEN/HYDROCODONE [Suspect]
     Active Substance: ACETAMINOPHEN\HYDROCODONE
     Indication: PAIN
     Route: 048
     Dates: start: 20170111, end: 20190102

REACTIONS (8)
  - Mental status changes [None]
  - Overdose [None]
  - Infection [None]
  - Hepatic encephalopathy [None]
  - Sedation [None]
  - Respiratory depression [None]
  - Respiratory failure [None]
  - Confusional state [None]

NARRATIVE: CASE EVENT DATE: 20190112
